FAERS Safety Report 5490665-8 (Version None)
Quarter: 2007Q4

REPORT INFORMATION
  Report Type: 
  Country: None (occurrence: None)
  Receive Date: 20071019
  Receipt Date: 20071012
  Transmission Date: 20080405
  Serious: Yes (Other)
  Sender: FDA-Public Use
  Company Number: US-ASTRAZENECA-2007UW23729

PATIENT
  Age: 68 Year
  Sex: Female
  Weight: 90.7 kg

DRUGS (3)
  1. ARIMIDEX [Suspect]
     Indication: BREAST CANCER
     Route: 048
     Dates: start: 20070101
  2. ARTHROTEC [Concomitant]
  3. PREVACID [Concomitant]

REACTIONS (7)
  - BALANCE DISORDER [None]
  - BONE PAIN [None]
  - DIARRHOEA [None]
  - FALL [None]
  - HEAD INJURY [None]
  - HOT FLUSH [None]
  - MALAISE [None]
